FAERS Safety Report 13260592 (Version 3)
Quarter: 2017Q1

REPORT INFORMATION
  Report Type: Spontaneous
  Country: US (occurrence: US)
  Receive Date: 20170222
  Receipt Date: 20170310
  Transmission Date: 20170428
  Serious: Yes (Hospitalization)
  Sender: FDA-Public Use
  Company Number: US-UNITED THERAPEUTICS-UNT-2017-001382

PATIENT
  Age: 74 Year
  Sex: Female
  Weight: 71.66 kg

DRUGS (4)
  1. TYVASO [Suspect]
     Active Substance: TREPROSTINIL
     Dosage: UNK
  2. TYVASO [Suspect]
     Active Substance: TREPROSTINIL
     Indication: PULMONARY HYPERTENSION
     Dosage: 18-54 ?G, QID
     Dates: start: 20161228, end: 20170301
  3. ADCIRCA [Concomitant]
     Active Substance: TADALAFIL
     Indication: PRODUCT USED FOR UNKNOWN INDICATION
  4. VALSARTAN. [Suspect]
     Active Substance: VALSARTAN
     Indication: PRODUCT USED FOR UNKNOWN INDICATION
     Dosage: 160 MG, BID
     Route: 065

REACTIONS (15)
  - Eye injury [Recovered/Resolved]
  - Catheterisation cardiac [Recovered/Resolved]
  - Loss of consciousness [Recovered/Resolved]
  - Dysphonia [Recovered/Resolved]
  - Flushing [Recovered/Resolved]
  - Hypotension [Recovered/Resolved]
  - Joint swelling [Recovered/Resolved]
  - Presyncope [Recovered/Resolved]
  - Headache [Recovered/Resolved]
  - Dizziness [Recovered/Resolved]
  - Head injury [Recovered/Resolved]
  - Cough [Recovered/Resolved]
  - Hypertension [Recovered/Resolved]
  - Asthenia [Recovered/Resolved]
  - Drug dose omission [Unknown]

NARRATIVE: CASE EVENT DATE: 201612
